FAERS Safety Report 18049619 (Version 1)
Quarter: 2020Q3

REPORT INFORMATION
  Report Type: Spontaneous
  Country: JP (occurrence: JP)
  Receive Date: 20200721
  Receipt Date: 20200721
  Transmission Date: 20201103
  Serious: Yes (Other)
  Sender: FDA-Public Use
  Company Number: JP-PFIZER INC-2020272896

PATIENT

DRUGS (2)
  1. SUTENT [Suspect]
     Active Substance: SUNITINIB MALATE
     Indication: PANCREATIC NEUROENDOCRINE TUMOUR
     Dosage: 37.5 MG
     Dates: start: 20200521
  2. AFINITOR [Concomitant]
     Active Substance: EVEROLIMUS
     Indication: PANCREATIC NEUROENDOCRINE TUMOUR
     Dosage: UNK (FROM 10OCT OF AN UNSPECIFIED YEAR )

REACTIONS (6)
  - Hypoalbuminaemia [Unknown]
  - Renal impairment [Unknown]
  - Proteinuria [Unknown]
  - Hypoproteinaemia [Unknown]
  - Hypogammaglobulinaemia [Unknown]
  - Neoplasm progression [Unknown]

NARRATIVE: CASE EVENT DATE: 2020
